FAERS Safety Report 8929984 (Version 2)
Quarter: 2015Q3

REPORT INFORMATION
  Report Type: Spontaneous
  Country: IT (occurrence: IT)
  Receive Date: 20121128
  Receipt Date: 20150917
  Transmission Date: 20151125
  Serious: Yes (Hospitalization)
  Sender: FDA-Public Use
  Company Number: PHHY2012IT108189

PATIENT
  Age: 31 Year
  Sex: Female

DRUGS (4)
  1. DIAZEPAM. [Suspect]
     Active Substance: DIAZEPAM
     Dosage: 14 GTT, UNK
     Dates: start: 20121101, end: 20121101
  2. XANAX [Suspect]
     Active Substance: ALPRAZOLAM
     Dosage: 350 MG, UNK
     Route: 048
     Dates: start: 20121101, end: 20121101
  3. DEPAKIN [Suspect]
     Active Substance: VALPROATE SODIUM
     Dosage: 1 DF, UNK
     Route: 048
     Dates: start: 20121101, end: 20121101
  4. FLUOXETINE HYDROCHLORIDE. [Suspect]
     Active Substance: FLUOXETINE HYDROCHLORIDE
     Dosage: 30 MG, UNK
     Dates: start: 20121101, end: 20121101

REACTIONS (3)
  - Sopor [Recovering/Resolving]
  - Intentional overdose [Unknown]
  - Drug abuse [Recovering/Resolving]

NARRATIVE: CASE EVENT DATE: 20121101
